FAERS Safety Report 11329166 (Version 1)
Quarter: 2015Q3

REPORT INFORMATION
  Report Type: Spontaneous
  Country: GB (occurrence: GB)
  Receive Date: 20150803
  Receipt Date: 20150803
  Transmission Date: 20151125
  Serious: Yes (Hospitalization)
  Sender: FDA-Public Use
  Company Number: GB-ROCHE-1616296

PATIENT
  Age: 89 Year
  Sex: Female
  Weight: 45 kg

DRUGS (3)
  1. ERIVEDGE [Suspect]
     Active Substance: VISMODEGIB
     Indication: BASAL CELL CARCINOMA
     Route: 065
     Dates: start: 20150603, end: 20150714
  2. BISOPROLOL [Concomitant]
     Active Substance: BISOPROLOL
     Route: 065
  3. LERCANIDIPINE [Concomitant]
     Active Substance: LERCANIDIPINE
     Route: 065

REACTIONS (5)
  - Muscle spasms [Recovered/Resolved with Sequelae]
  - Transaminases increased [Recovering/Resolving]
  - Myalgia [Recovered/Resolved with Sequelae]
  - Acute kidney injury [Recovering/Resolving]
  - Malaise [Recovered/Resolved with Sequelae]

NARRATIVE: CASE EVENT DATE: 20150714
